FAERS Safety Report 13328527 (Version 1)
Quarter: 2017Q1

REPORT INFORMATION
  Report Type: Other
  Country: None (occurrence: DE)
  Receive Date: 20170313
  Receipt Date: 20170313
  Transmission Date: 20170428
  Serious: Yes (Congenital Anomaly, Other)
  Sender: FDA-Public Use
  Company Number: DE-HETERO LABS LTD-1064170

PATIENT
  Age: 1 Day
  Sex: Male

DRUGS (3)
  1. DULOXETINE. [Suspect]
     Active Substance: DULOXETINE
     Indication: BIPOLAR DISORDER
     Route: 064
  2. RISPERIDONE. [Suspect]
     Active Substance: RISPERIDONE
     Route: 064
  3. AKINETON [Suspect]
     Active Substance: BIPERIDEN HYDROCHLORIDE

REACTIONS (3)
  - Premature baby [Unknown]
  - Gastroschisis [Unknown]
  - Foetal exposure during pregnancy [Unknown]
